FAERS Safety Report 4366401-5 (Version None)
Quarter: 2004Q2

REPORT INFORMATION
  Report Type: 
  Country: None (occurrence: None)
  Receive Date: 20040527
  Receipt Date: 20040517
  Transmission Date: 20050107
  Serious: Yes (Hospitalization)
  Sender: FDA-Public Use
  Company Number: FR-BRISTOL-MYERS SQUIBB COMPANY-12589164

PATIENT
  Age: 89 Year
  Sex: Female

DRUGS (6)
  1. APROVEL TABS 150 MG [Suspect]
     Route: 048
  2. DIGOXIN [Interacting]
  3. CELEBREX [Interacting]
  4. LASIX [Interacting]
     Route: 048
  5. PREVISCAN [Concomitant]
  6. TOPALGIC [Concomitant]

REACTIONS (6)
  - ATRIOVENTRICULAR BLOCK SECOND DEGREE [None]
  - BRADYCARDIA [None]
  - DEHYDRATION [None]
  - DRUG INTERACTION [None]
  - GENERAL PHYSICAL HEALTH DETERIORATION [None]
  - RENAL FAILURE [None]
